FAERS Safety Report 11986440 (Version 1)
Quarter: 2016Q1

REPORT INFORMATION
  Report Type: Spontaneous
  Country: CA (occurrence: None)
  Receive Date: 20160201
  Receipt Date: 20160201
  Transmission Date: 20160526
  Serious: No
  Sender: FDA-Public Use
  Company Number: None

PATIENT
  Age: 43 Year
  Sex: Female
  Weight: 103.42 kg

DRUGS (2)
  1. EFFEXOR [Concomitant]
     Active Substance: VENLAFAXINE HYDROCHLORIDE
  2. KDS LAB LIQUID STYPTIC  KDS LAB [Suspect]
     Active Substance: ALCOHOL\LIDOCAINE HYDROCHLORIDE\ZINC CHLORIDE
     Indication: NAIL BED BLEEDING
     Dosage: DROP PER AREA, 1-3 X QD PRN, APPLIED TO SURFACE, USUALLY THE SKIN

REACTIONS (3)
  - Chemical injury [None]
  - Burning sensation [None]
  - Wrong technique in product usage process [None]

NARRATIVE: CASE EVENT DATE: 20160127
